FAERS Safety Report 6652488-3 (Version None)
Quarter: 2010Q1

REPORT INFORMATION
  Report Type: 
  Country: None (occurrence: None)
  Receive Date: 20100325
  Receipt Date: 20100318
  Transmission Date: 20100710
  Serious: Yes (Other)
  Sender: FDA-Public Use
  Company Number: CH-AMGEN-STX350417

PATIENT
  Age: 61 Year
  Sex: Female

DRUGS (8)
  1. CINACALCET HYDROCHLORIDE [Suspect]
     Indication: HYPERPARATHYROIDISM SECONDARY
     Route: 048
     Dates: start: 20090101, end: 20090101
  2. KALETRA [Suspect]
     Route: 048
  3. INVIRASE [Suspect]
     Route: 048
  4. LAMIVUDINE [Concomitant]
  5. AVELOX [Concomitant]
     Dates: start: 20090101
  6. RECORMON [Concomitant]
  7. VENOFER [Concomitant]
  8. ROCALTROL [Concomitant]

REACTIONS (3)
  - DYSPNOEA [None]
  - HYPERSENSITIVITY [None]
  - LOCALISED OEDEMA [None]
